FAERS Safety Report 17203558 (Version 3)
Quarter: 2021Q1

REPORT INFORMATION
  Report Type: Spontaneous
  Country: US (occurrence: US)
  Receive Date: 20191226
  Receipt Date: 20210318
  Transmission Date: 20210419
  Serious: No
  Sender: FDA-Public Use
  Company Number: US-CATALYST PHARMACEUTICALS, INC-2019CAT00492

PATIENT
  Sex: Female

DRUGS (6)
  1. FIRDAPSE [Suspect]
     Active Substance: AMIFAMPRIDINE PHOSPHATE
     Indication: MYASTHENIC SYNDROME
     Dosage: 10 MG, 1X/DAY
     Dates: start: 2017
  2. FIRDAPSE [Suspect]
     Active Substance: AMIFAMPRIDINE PHOSPHATE
     Dosage: 20 MG, 4X/DAY
  3. FIRDAPSE [Suspect]
     Active Substance: AMIFAMPRIDINE PHOSPHATE
     Dosage: 20 MG, 4X/DAY
  4. IMMUNOGLOBULIN [Concomitant]
     Dosage: UNK
  5. FIRDAPSE [Suspect]
     Active Substance: AMIFAMPRIDINE PHOSPHATE
     Dosage: 80 MG, 4X/DAY
  6. IMMUNOGLOBULIN [Concomitant]
     Dosage: 30 MG, 1X/MONTH

REACTIONS (4)
  - Peroneal nerve palsy [Not Recovered/Not Resolved]
  - Paraesthesia [Unknown]
  - Paraesthesia oral [Unknown]
  - Overdose [Unknown]

NARRATIVE: CASE EVENT DATE: 2017
